FAERS Safety Report 6786116-3 (Version None)
Quarter: 2010Q2

REPORT INFORMATION
  Report Type: 
  Country: None (occurrence: None)
  Receive Date: 20100623
  Receipt Date: 20100611
  Transmission Date: 20101027
  Serious: Yes (Other)
  Sender: FDA-Public Use
  Company Number: US-PFIZER INC-2010003453

PATIENT
  Sex: Female
  Weight: 103 kg

DRUGS (17)
  1. SUTENT [Suspect]
     Indication: THYROID CANCER METASTATIC
     Dosage: 50 MG, DAILY
     Route: 048
     Dates: start: 20091015
  2. MAGIC MOUTHWASH [Suspect]
     Indication: ORAL PAIN
     Dates: start: 20091001
  3. EPSOM SALTS [Suspect]
     Indication: CONSTIPATION
  4. ZOFRAN [Concomitant]
     Indication: NAUSEA
     Dosage: UNK
  5. OMEPRAZOLE [Concomitant]
     Dosage: 40 MG, 2X/DAY
  6. CALCITRIOL [Concomitant]
     Dosage: 0.50 UG, DAILY
     Route: 048
  7. LEVOTHYROXINE SODIUM [Concomitant]
     Dosage: 175 UG, 1X/DAY
     Route: 048
  8. FLUNISOLIDE [Concomitant]
     Indication: RHINITIS ALLERGIC
     Dosage: 2 SPRAYS,  2X/DAY
     Route: 055
  9. QVAR 40 [Concomitant]
     Indication: ASTHMA
     Dosage: 160 UG, 2X/DAY
     Route: 055
  10. SALBUTAMOL [Concomitant]
     Indication: ASTHMA
     Dosage: 2 PUFFS, 2X/DAY, AS NEEDED
  11. ZYRTEC-D 12 HOUR [Concomitant]
     Indication: RHINITIS ALLERGIC
     Dosage: 2X/DAY
     Route: 048
  12. GLUCOSAMINE [Concomitant]
     Dosage: 2X/DAY
  13. CALCIUM [Concomitant]
     Dosage: 2400 MG, DAILY
  14. POTASSIUM GLUCONATE [Concomitant]
     Dosage: 550 MG, DAILY
  15. EXTRA STRENGTH TYLENOL [Concomitant]
     Indication: INSOMNIA
     Dosage: UNK
  16. PEPCID [Concomitant]
     Dosage: AS NEEDED
  17. TUMS [Concomitant]
     Dosage: AS NEEDED

REACTIONS (22)
  - BRONCHITIS [None]
  - CAPILLARY DISORDER [None]
  - COUGH [None]
  - DEPRESSION [None]
  - DYSGEUSIA [None]
  - DYSPHAGIA [None]
  - DYSPNOEA [None]
  - ERYTHEMA [None]
  - GASTROOESOPHAGEAL REFLUX DISEASE [None]
  - HAEMORRHAGE [None]
  - HYPOAESTHESIA ORAL [None]
  - INCREASED TENDENCY TO BRUISE [None]
  - INSOMNIA [None]
  - IRRITABILITY [None]
  - OROPHARYNGEAL BLISTERING [None]
  - PHARYNGEAL HYPOAESTHESIA [None]
  - POSTNASAL DRIP [None]
  - SALIVARY HYPERSECRETION [None]
  - STOMATITIS [None]
  - SWOLLEN TONGUE [None]
  - THYROGLOBULIN INCREASED [None]
  - TONGUE DRY [None]
